FAERS Safety Report 24123304 (Version 1)
Quarter: 2024Q3

REPORT INFORMATION
  Report Type: Spontaneous
  Country: US (occurrence: US)
  Receive Date: 20240723
  Receipt Date: 20240723
  Transmission Date: 20241016
  Serious: Yes (Other)
  Sender: OTSUKA
  Company Number: US-OTSUKA-2023_026478

PATIENT
  Age: 78 Year
  Sex: Female

DRUGS (2)
  1. REXULTI [Suspect]
     Active Substance: BREXPIPRAZOLE
     Indication: Product used for unknown indication
     Dosage: 2 MG (STARTER PACK AND FURTHER TITRATED)
     Route: 065
     Dates: start: 202308, end: 202309
  2. REXULTI [Suspect]
     Active Substance: BREXPIPRAZOLE
     Dosage: 0.5 MG (RESTARTED)
     Route: 065

REACTIONS (1)
  - Blood glucose increased [Recovering/Resolving]
